FAERS Safety Report 18306428 (Version 1)
Quarter: 2020Q3

REPORT INFORMATION
  Report Type: Spontaneous
  Country: US (occurrence: US)
  Receive Date: 20200923
  Receipt Date: 20200923
  Transmission Date: 20201103
  Serious: Yes (Hospitalization, Other)
  Sender: FDA-Public Use
  Company Number: None

PATIENT
  Age: 67 Year
  Sex: Female

DRUGS (1)
  1. METOPROLOL (METOPROLOL SUCCINATE 50MG, SA) [Suspect]
     Active Substance: METOPROLOL SUCCINATE
     Route: 048
     Dates: start: 20200312, end: 20200721

REACTIONS (4)
  - Syncope [None]
  - Hypotension [None]
  - Wrist fracture [None]
  - Fall [None]

NARRATIVE: CASE EVENT DATE: 20200721
